FAERS Safety Report 11804455 (Version 2)
Quarter: 2015Q4

REPORT INFORMATION
  Report Type: Report from Study
  Country: IT (occurrence: IT)
  Receive Date: 20151204
  Receipt Date: 20151229
  Transmission Date: 20160305
  Serious: Yes (Hospitalization)
  Sender: FDA-Public Use
  Company Number: IT-ABBVIE-15P-083-1511922-00

PATIENT
  Age: 86 Year
  Sex: Female

DRUGS (1)
  1. DUODOPA [Suspect]
     Active Substance: CARBIDOPA\LEVODOPA
     Indication: PARKINSON^S DISEASE
     Dosage: MD 11,2  +3?CR 3?ED 3,7
     Route: 050
     Dates: start: 20120319

REACTIONS (2)
  - Cerebrovascular accident [Unknown]
  - Bedridden [Unknown]

NARRATIVE: CASE EVENT DATE: 20151123
